FAERS Safety Report 12680482 (Version 2)
Quarter: 2016Q3

REPORT INFORMATION
  Report Type: Spontaneous
  Country: CN (occurrence: CN)
  Receive Date: 20160824
  Receipt Date: 20160921
  Transmission Date: 20161109
  Serious: Yes (Other)
  Sender: FDA-Public Use
  Company Number: CN-CELGENEUS-CHN-2016083056

PATIENT

DRUGS (1)
  1. ABRAXANE [Suspect]
     Active Substance: PACLITAXEL
     Indication: OESOPHAGEAL CARCINOMA
     Dosage: 270 MILLIGRAM/SQ. METER
     Route: 065
     Dates: start: 201401, end: 201510

REACTIONS (11)
  - Aspartate aminotransferase increased [Unknown]
  - Peripheral sensory neuropathy [Unknown]
  - Renal impairment [Unknown]
  - Thrombocytopenia [Unknown]
  - Leukopenia [Unknown]
  - Vomiting [Unknown]
  - Neurotoxicity [Unknown]
  - Alanine aminotransferase increased [Unknown]
  - Neutropenia [Unknown]
  - Alopecia [Unknown]
  - Oesophageal carcinoma [Unknown]
